FAERS Safety Report 15204246 (Version 1)
Quarter: 2018Q3

REPORT INFORMATION
  Report Type: Spontaneous
  Country: US (occurrence: US)
  Receive Date: 20180726
  Receipt Date: 20180726
  Transmission Date: 20181010
  Serious: No
  Sender: FDA-Public Use
  Company Number: US-GLAXOSMITHKLINE-US2018129586

PATIENT
  Age: 64 Year
  Sex: Female

DRUGS (4)
  1. PROAIR HFA [Concomitant]
     Active Substance: ALBUTEROL SULFATE
  2. DOXEPIN [Concomitant]
     Active Substance: DOXEPIN
  3. IMITREX [Concomitant]
     Active Substance: SUMATRIPTAN SUCCINATE
  4. BREO ELLIPTA [Suspect]
     Active Substance: FLUTICASONE FUROATE\VILANTEROL TRIFENATATE
     Indication: ASTHMA
     Dosage: UNK
     Route: 055
     Dates: start: 20180627

REACTIONS (8)
  - Headache [Unknown]
  - Drug dose omission [Recovered/Resolved]
  - Memory impairment [Unknown]
  - Tooth repair [Unknown]
  - Abnormal dreams [Unknown]
  - Photopsia [Unknown]
  - Condition aggravated [Unknown]
  - Dyskinesia [Unknown]

NARRATIVE: CASE EVENT DATE: 201807
